FAERS Safety Report 6991621-0 (Version None)
Quarter: 2010Q3

REPORT INFORMATION
  Report Type: 
  Country: None (occurrence: None)
  Receive Date: 20100917
  Receipt Date: 20100907
  Transmission Date: 20110219
  Serious: No
  Sender: FDA-Public Use
  Company Number: US-BIOGENIDEC-2010BI030832

PATIENT
  Age: 57 Year
  Sex: Female

DRUGS (3)
  1. AVONEX [Suspect]
     Indication: MULTIPLE SCLEROSIS
     Route: 030
     Dates: start: 20010101
  2. AVONEX [Suspect]
     Route: 030
     Dates: start: 20100401
  3. AVONEX [Suspect]
     Route: 030
     Dates: end: 20090101

REACTIONS (5)
  - BACK PAIN [None]
  - CHEST PAIN [None]
  - CHILLS [None]
  - HEADACHE [None]
  - NAUSEA [None]
